FAERS Safety Report 8101606-9 (Version None)
Quarter: 2012Q1

REPORT INFORMATION
  Report Type: 
  Country: None (occurrence: None)
  Receive Date: 20120129
  Receipt Date: 20110921
  Transmission Date: 20120608
  Serious: No
  Sender: FDA-Public Use
  Company Number: US-ABBOTT-11P-163-0855857-00

PATIENT
  Sex: Female
  Weight: 55.842 kg

DRUGS (8)
  1. HUMIRA [Suspect]
     Dosage: SINGLE DOSE
     Dates: start: 20110701, end: 20110701
  2. HUMIRA [Suspect]
  3. HUMIRA [Suspect]
     Indication: CROHN'S DISEASE
     Dosage: SINGLE DOSE
     Dates: start: 20110301, end: 20110301
  4. HUMIRA [Suspect]
     Dosage: SINGLE DOSE
  5. PROZAC [Concomitant]
     Indication: NERVOUSNESS
  6. HUMIRA [Suspect]
     Dates: end: 20110701
  7. TRIEST [Concomitant]
     Indication: HORMONE REPLACEMENT THERAPY
  8. HUMIRA [Suspect]
     Dosage: SINGLE DOSE

REACTIONS (9)
  - WOUND SECRETION [None]
  - GASTROINTESTINAL DISORDER [None]
  - ERYTHEMA [None]
  - INCORRECT ROUTE OF DRUG ADMINISTRATION [None]
  - INJECTION SITE PAIN [None]
  - PRURITUS [None]
  - GASTRIC DILATATION [None]
  - SCAR [None]
  - SMALL INTESTINE ULCER [None]
